FAERS Safety Report 16707369 (Version 2)
Quarter: 2020Q4

REPORT INFORMATION
  Report Type: Spontaneous
  Country: BR (occurrence: BR)
  Receive Date: 20190815
  Receipt Date: 20201002
  Transmission Date: 20210113
  Serious: Yes (Other)
  Sender: FDA-Public Use
  Company Number: BR-BAYER-2019-151269

PATIENT
  Age: 30 Year
  Sex: Female

DRUGS (1)
  1. MIRENA [Suspect]
     Active Substance: LEVONORGESTREL
     Indication: CONTRACEPTION
     Dosage: 20 MCG/24HR, CONT
     Route: 015
     Dates: start: 201704, end: 201908

REACTIONS (12)
  - Vaginal haemorrhage [Recovered/Resolved]
  - Acne [Recovered/Resolved]
  - Urinary tract infection [Recovered/Resolved]
  - Vulvovaginal candidiasis [Recovered/Resolved]
  - Maternal exposure during breast feeding [Recovered/Resolved]
  - Sudden hearing loss [Recovered/Resolved]
  - Influenza [Recovered/Resolved]
  - Pharyngitis [Recovered/Resolved]
  - Alopecia [Recovered/Resolved]
  - Vaginal haemorrhage [Recovered/Resolved]
  - Vertigo [Recovered/Resolved]
  - Vaginal haemorrhage [Recovered/Resolved]

NARRATIVE: CASE EVENT DATE: 201704
